FAERS Safety Report 25773461 (Version 1)
Quarter: 2025Q3

REPORT INFORMATION
  Report Type: Spontaneous
  Country: US (occurrence: None)
  Receive Date: 20250906
  Receipt Date: 20250906
  Transmission Date: 20251020
  Serious: Yes (Hospitalization)
  Sender: FDA-CTU
  Company Number: None

PATIENT
  Age: 60 Year
  Sex: Female
  Weight: 86.2 kg

DRUGS (2)
  1. DEXAMETHASONE [Suspect]
     Active Substance: DEXAMETHASONE
     Dates: end: 20250828
  2. LENALIDOMIDE [Suspect]
     Active Substance: LENALIDOMIDE
     Dates: end: 20250828

REACTIONS (7)
  - Polyuria [None]
  - Dizziness [None]
  - Blood glucose increased [None]
  - Therapy interrupted [None]
  - Hyperglycaemia [None]
  - Heart rate increased [None]
  - Constipation [None]

NARRATIVE: CASE EVENT DATE: 20250829
